FAERS Safety Report 4597523-1 (Version None)
Quarter: 2005Q1

REPORT INFORMATION
  Report Type: 
  Country: None (occurrence: None)
  Receive Date: 20050228
  Receipt Date: 20050228
  Transmission Date: 20050727
  Serious: Yes (Life-Threatening)
  Sender: FDA-Public Use
  Company Number: None

PATIENT
  Age: 77 Year
  Sex: Male
  Weight: 56.6996 kg

DRUGS (6)
  1. AVELOX [Suspect]
     Indication: PNEUMONIA
     Dosage: 400 MG IV QD
     Route: 042
     Dates: start: 20040911, end: 20040912
  2. PREVACID [Concomitant]
  3. LASIX [Concomitant]
  4. SOLU-MEDROL [Concomitant]
  5. LOVENOX [Concomitant]
  6. ASPIRIN [Concomitant]

REACTIONS (6)
  - ANOXIC ENCEPHALOPATHY [None]
  - COMA [None]
  - DEPENDENCE ON RESPIRATOR [None]
  - PULSE ABSENT [None]
  - RESPIRATORY FAILURE [None]
  - TORSADE DE POINTES [None]
